FAERS Safety Report 6542551-X (Version None)
Quarter: 2010Q1

REPORT INFORMATION
  Report Type: 
  Country: None (occurrence: None)
  Receive Date: 20100119
  Receipt Date: 20100105
  Transmission Date: 20100710
  Serious: Yes (Other)
  Sender: FDA-Public Use
  Company Number: GB-MYLANLABS-2010S1000384

PATIENT
  Age: 29 Year
  Sex: Female

DRUGS (5)
  1. NIFEDIPINE [Suspect]
     Indication: PREMATURE LABOUR
  2. CYCLIZINE [Suspect]
     Indication: VOMITING
  3. CORTICOSTEROIDS [Suspect]
     Indication: PREMATURE LABOUR
  4. MIFEPRISTONE [Concomitant]
     Indication: INDUCED LABOUR
  5. MISOPROSTOL [Concomitant]
     Indication: INDUCED LABOUR

REACTIONS (6)
  - ASTERIXIS [None]
  - CARDIOVASCULAR DISORDER [None]
  - DRUG EXPOSURE DURING PREGNANCY [None]
  - JAUNDICE [None]
  - OLIGURIA [None]
  - TACHYCARDIA [None]
